FAERS Safety Report 4601841-8 (Version None)
Quarter: 2005Q1

REPORT INFORMATION
  Report Type: 
  Country: None (occurrence: None)
  Receive Date: 20050131
  Receipt Date: 20041018
  Transmission Date: 20050727
  Serious: No
  Sender: FDA-Public Use
  Company Number: 200417971US

PATIENT
  Age: 78 Year
  Sex: Female
  Weight: 84 kg

DRUGS (5)
  1. TELITHROMYCIN (KETEK) TABLETS [Suspect]
     Indication: SINUSITIS
     Dosage: 800 MG QD PO
     Route: 048
     Dates: start: 20040929, end: 20040929
  2. FLUTICASONE PROPIONATE, SALMETEROL XINAFOATE (ADVAIR) [Concomitant]
  3. MOMETASONE FUROATE (NASONEX) [Concomitant]
  4. PARACETAMOL, DEXTROPROPOXYPHENE NAPSILATE (DARVOCET-N) [Concomitant]
  5. IBUPROFEN [Concomitant]

REACTIONS (6)
  - ABNORMAL DREAMS [None]
  - COLOUR BLINDNESS [None]
  - DIARRHOEA [None]
  - NAUSEA [None]
  - PRURITUS [None]
  - VISION BLURRED [None]
